FAERS Safety Report 17214236 (Version 2)
Quarter: 2020Q1

REPORT INFORMATION
  Report Type: Spontaneous
  Country: US (occurrence: US)
  Receive Date: 20191230
  Receipt Date: 20200207
  Transmission Date: 20200409
  Serious: No
  Sender: FDA-Public Use
  Company Number: US-PFIZER INC-2019559781

PATIENT
  Age: 42 Year
  Sex: Female
  Weight: 92.63 kg

DRUGS (1)
  1. LYRICA [Suspect]
     Active Substance: PREGABALIN
     Indication: FIBROMYALGIA
     Dosage: 200 MG, 2X/DAY

REACTIONS (2)
  - Malaise [Unknown]
  - Withdrawal syndrome [Unknown]
